FAERS Safety Report 4959562-8 (Version None)
Quarter: 2006Q1

REPORT INFORMATION
  Report Type: 
  Country: None (occurrence: None)
  Receive Date: 20060331
  Receipt Date: 20060130
  Transmission Date: 20060701
  Serious: Yes (Hospitalization)
  Sender: FDA-Public Use
  Company Number: PL-MERCK-0601POL00008

PATIENT
  Age: 78 Year
  Sex: Female

DRUGS (32)
  1. PIRACETAM [Concomitant]
     Route: 065
     Dates: start: 20020521
  2. PIRACETAM [Concomitant]
     Route: 065
     Dates: start: 20020801
  3. DIGOXIN [Concomitant]
     Route: 065
     Dates: start: 20011031
  4. BETAMETHASONE [Concomitant]
     Route: 065
     Dates: start: 20011031
  5. SPIRONOLACTONE [Concomitant]
     Route: 065
     Dates: start: 20011031
  6. RANITIDINE [Concomitant]
     Route: 065
     Dates: start: 20011031
  7. POTASSIUM (UNSPECIFIED) [Concomitant]
     Route: 065
     Dates: start: 20011101
  8. DICLOFENAC SODIUM [Concomitant]
     Route: 065
     Dates: start: 20020416
  9. DICLOFENAC SODIUM [Concomitant]
     Route: 065
     Dates: start: 20020801
  10. DIOSMIN AND HESPERIDIN [Concomitant]
     Route: 065
     Dates: start: 20020801
  11. VERAPAMIL [Concomitant]
     Route: 065
     Dates: start: 20020801
  12. TETRAZEPAM [Concomitant]
     Route: 065
     Dates: start: 20020801
  13. ISOSORBIDE MONONITRATE [Concomitant]
     Route: 065
     Dates: start: 20020801
  14. GABAPENTIN [Concomitant]
     Route: 065
     Dates: start: 20020823
  15. VIOXX [Suspect]
     Indication: POLYNEUROPATHY
     Route: 048
     Dates: start: 20010801, end: 20040901
  16. VIOXX [Suspect]
     Indication: PAIN
     Route: 048
     Dates: start: 20010801, end: 20040901
  17. ALENDRONATE SODIUM [Concomitant]
     Route: 048
     Dates: start: 20010829
  18. KETOPROFEN [Concomitant]
     Route: 065
     Dates: start: 20010829
  19. MIDAZOLAM [Concomitant]
     Route: 065
     Dates: start: 20010829
  20. NIACINAMIDE [Concomitant]
     Route: 065
     Dates: start: 20011003
  21. NIACINAMIDE [Concomitant]
     Route: 065
     Dates: start: 20011031
  22. CARBAMAZEPINE [Concomitant]
     Route: 065
     Dates: start: 20011003
  23. FUROSEMIDE [Concomitant]
     Route: 065
     Dates: start: 20020521
  24. TRAMADOL HYDROCHLORIDE [Concomitant]
     Route: 065
     Dates: start: 20020823
  25. FORMOTEROL FUMARATE [Concomitant]
     Route: 055
     Dates: start: 20020823
  26. NIMESULIDE [Concomitant]
     Route: 065
     Dates: start: 20021204
  27. TIZANIDINE HYDROCHLORIDE [Concomitant]
     Route: 065
     Dates: start: 20021204
  28. HYDROXYZINE HYDROCHLORIDE [Concomitant]
     Route: 065
     Dates: start: 20030702
  29. PENTOXIFYLLINE [Concomitant]
     Route: 065
     Dates: start: 20030613
  30. ACETYLCYSTEINE [Concomitant]
     Route: 048
     Dates: start: 20030613
  31. THEOPHYLLINE [Concomitant]
     Route: 065
     Dates: start: 20030613
  32. IODINE [Concomitant]
     Route: 065
     Dates: start: 20010101

REACTIONS (32)
  - ACUTE RESPIRATORY FAILURE [None]
  - AGITATION [None]
  - AMNESIA [None]
  - ANXIETY [None]
  - ATRIAL FIBRILLATION [None]
  - BALANCE DISORDER [None]
  - BLOOD PRESSURE INCREASED [None]
  - BRONCHITIS CHRONIC [None]
  - CARDIAC FAILURE CHRONIC [None]
  - CARDIOMYOPATHY [None]
  - CHEST PAIN [None]
  - DEPRESSED LEVEL OF CONSCIOUSNESS [None]
  - DEPRESSION [None]
  - DISORIENTATION [None]
  - DIZZINESS [None]
  - DRUG ADMINISTRATION ERROR [None]
  - DYSPNOEA [None]
  - FATIGUE [None]
  - FEELING HOT [None]
  - GENERAL PHYSICAL HEALTH DETERIORATION [None]
  - HEADACHE [None]
  - HYPERACUSIS [None]
  - HYPERHIDROSIS [None]
  - LOSS OF CONSCIOUSNESS [None]
  - LYMPHADENOPATHY [None]
  - LYMPHOCYTIC LEUKAEMIA [None]
  - MYOCARDIAL ISCHAEMIA [None]
  - PERSONALITY DISORDER [None]
  - PNEUMONIA [None]
  - PULMONARY EMBOLISM [None]
  - PULMONARY OEDEMA [None]
  - TINNITUS [None]
